FAERS Safety Report 4445726-9 (Version None)
Quarter: 2004Q3

REPORT INFORMATION
  Report Type: 
  Country: None (occurrence: None)
  Receive Date: 20040910
  Receipt Date: 20040817
  Transmission Date: 20050211
  Serious: Yes (Congenital Anomaly, Other)
  Sender: FDA-Public Use
  Company Number: NO-AMGEN-UK087678

PATIENT
  Sex: Female

DRUGS (1)
  1. NEUPOGEN [Suspect]
     Indication: BLOOD STEM CELL HARVEST
     Route: 058
     Dates: start: 20011122, end: 20011127

REACTIONS (8)
  - DRUG EXPOSURE DURING PREGNANCY [None]
  - HYDROPS FOETALIS [None]
  - INDUCED LABOUR [None]
  - INFARCTION [None]
  - INFLUENZA [None]
  - INTRA-UTERINE DEATH [None]
  - PLACENTAL DISORDER [None]
  - STILLBIRTH [None]
